FAERS Safety Report 17196143 (Version 2)
Quarter: 2019Q4

REPORT INFORMATION
  Report Type: Spontaneous
  Country: JP (occurrence: JP)
  Receive Date: 20191224
  Receipt Date: 20191224
  Transmission Date: 20200122
  Serious: Yes (Other)
  Sender: FDA-Public Use
  Company Number: JP-SA-2019SA351883

PATIENT
  Sex: Male

DRUGS (2)
  1. ELPLAT [Suspect]
     Active Substance: OXALIPLATIN
     Indication: COLON CANCER
     Dosage: UNK UNK, Q3W
     Route: 041
  2. CAPECITABINE. [Suspect]
     Active Substance: CAPECITABINE
     Indication: COLON CANCER
     Dosage: TABLET
     Route: 048

REACTIONS (4)
  - Varicose vein [Recovering/Resolving]
  - Venoocclusive liver disease [Unknown]
  - Varices oesophageal [Recovering/Resolving]
  - Portal hypertension [Unknown]
